FAERS Safety Report 21793484 (Version 3)
Quarter: 2024Q3

REPORT INFORMATION
  Report Type: Spontaneous
  Country: BR (occurrence: BR)
  Receive Date: 20221229
  Receipt Date: 20240820
  Transmission Date: 20241016
  Serious: Yes (Other)
  Sender: NOVARTIS
  Company Number: BR-002147023-NVSC2022BR200374

PATIENT
  Age: 43 Year
  Sex: Female
  Weight: 93.5 kg

DRUGS (12)
  1. KISQALI [Suspect]
     Active Substance: RIBOCICLIB
     Indication: Breast cancer
     Dosage: 3 DOSAGE FORM, QD (3 TABLETS A DAY PER 21 DAYS, AND PAUSE OF 7 DAYS)
     Route: 048
     Dates: start: 202201
  2. KISQALI [Suspect]
     Active Substance: RIBOCICLIB
     Indication: Metastases to liver
     Dosage: 1 DOSAGE FORM, QD
     Route: 065
     Dates: start: 202201
  3. KISQALI [Suspect]
     Active Substance: RIBOCICLIB
     Indication: Metastases to bone
     Dosage: 3 DOSAGE QD FORM DAILY, FOR 21 DAYS WITH A 7- DAY BREAK
     Route: 065
     Dates: start: 2022
  4. ANASTROZOLE [Suspect]
     Active Substance: ANASTROZOLE
     Indication: Breast cancer
     Dosage: 1 MG (1 TABLE T DAILY)
     Route: 048
     Dates: start: 202201
  5. ANASTROZOLE [Suspect]
     Active Substance: ANASTROZOLE
     Dosage: 1 DOSAGE FORM, QW (1 TABLET PER WEEK)
     Route: 065
  6. GLICLAZIDE [Concomitant]
     Active Substance: GLICLAZIDE
     Indication: Diabetes mellitus
     Dosage: 30 MG (2 TABLETS A DAY)
     Route: 048
     Dates: start: 202102
  7. ALOGLIPTIN BENZOATE\METFORMIN HYDROCHLORIDE [Concomitant]
     Active Substance: ALOGLIPTIN BENZOATE\METFORMIN HYDROCHLORIDE
     Indication: Diabetes mellitus
     Dosage: STRENGTH: 12.5 MG/100 MG (2 TABLET S DAILY)
     Route: 048
     Dates: start: 202102
  8. KETOROLAC [Concomitant]
     Active Substance: KETOROLAC TROMETHAMINE
     Indication: Tendonitis
     Dosage: 1 TABLET DAILY
     Route: 065
  9. VITAMIN B [Concomitant]
     Active Substance: VITAMIN B
     Indication: Investigation
     Dosage: (1 TABLET PER DAY, AFTER LUNCH)
     Route: 065
  10. VITAMIN D [Concomitant]
     Active Substance: VITAMIN D NOS
     Indication: Investigation
     Dosage: 1 DOSAGE FORM, QW, (1 TABLET PER WEEK)
     Route: 048
     Dates: start: 202112
  11. VITAMIN D [Concomitant]
     Active Substance: VITAMIN D NOS
     Indication: Vitamin D
  12. GOSERELIN [Concomitant]
     Active Substance: GOSERELIN
     Indication: Breast cancer
     Dosage: UNK, (1 QUARTERLY APPLICATION)
     Route: 065

REACTIONS (9)
  - Infarction [Unknown]
  - Malaise [Unknown]
  - Hypertension [Unknown]
  - Chest pain [Unknown]
  - Nausea [Unknown]
  - Headache [Recovered/Resolved]
  - Nausea [Recovered/Resolved]
  - Anaemia [Unknown]
  - Rotavirus infection [Unknown]

NARRATIVE: CASE EVENT DATE: 20220101
